FAERS Safety Report 4564675-9 (Version None)
Quarter: 2005Q1

REPORT INFORMATION
  Report Type: 
  Country: None (occurrence: None)
  Receive Date: 20050126
  Receipt Date: 20050107
  Transmission Date: 20050727
  Serious: Yes (Life-Threatening, Hospitalization)
  Sender: FDA-Public Use
  Company Number: FR_050105567

PATIENT
  Age: 50 Year
  Sex: Male
  Weight: 78 kg

DRUGS (4)
  1. CEFACLOR [Suspect]
     Indication: SINUSITIS
     Dosage: 500 MG/1 DAY
     Dates: start: 20041215, end: 20041215
  2. ERCEFURYL (NIFUROXAZIDE EG) [Concomitant]
  3. METEOSPASMYL [Concomitant]
  4. ASPIRIN [Concomitant]

REACTIONS (3)
  - ANAPHYLACTIC SHOCK [None]
  - ANGIONEUROTIC OEDEMA [None]
  - TACHYCARDIA [None]
